FAERS Safety Report 10754886 (Version 1)
Quarter: 2015Q1

REPORT INFORMATION
  Report Type: Spontaneous
  Country: US (occurrence: None)
  Receive Date: 20150130
  Receipt Date: 20150130
  Transmission Date: 20150721
  Serious: Yes (Hospitalization)
  Sender: FDA-Public Use
  Company Number: None

PATIENT
  Age: 65 Year
  Sex: Female
  Weight: 93.44 kg

DRUGS (2)
  1. MIRAPEX [Suspect]
     Active Substance: PRAMIPEXOLE DIHYDROCHLORIDE
     Indication: PRODUCT USED FOR UNKNOWN INDICATION
     Route: 048
     Dates: start: 20141030, end: 20141127
  2. MIRAPEX [Suspect]
     Active Substance: PRAMIPEXOLE DIHYDROCHLORIDE
     Indication: NO THERAPEUTIC RESPONSE
     Route: 048
     Dates: start: 20141030, end: 20141127

REACTIONS (5)
  - Confusional state [None]
  - Parkinsonism [None]
  - Hallucination [None]
  - Amnesia [None]
  - Headache [None]

NARRATIVE: CASE EVENT DATE: 20141127
